FAERS Safety Report 16299218 (Version 4)
Quarter: 2022Q2

REPORT INFORMATION
  Report Type: Spontaneous
  Country: US (occurrence: None)
  Receive Date: 20190510
  Receipt Date: 20220601
  Transmission Date: 20220721
  Serious: Yes (Other)
  Sender: FDA-Public Use
  Company Number: 2019SE64163

PATIENT
  Age: 61 Year
  Sex: Female
  Weight: 98.4 kg

DRUGS (73)
  1. NEXIUM [Suspect]
     Active Substance: ESOMEPRAZOLE MAGNESIUM
     Indication: Gastrooesophageal reflux disease
     Route: 048
     Dates: start: 2005, end: 20170817
  2. NEXIUM [Suspect]
     Active Substance: ESOMEPRAZOLE MAGNESIUM
     Indication: Gastrooesophageal reflux disease
     Route: 048
     Dates: start: 20071109, end: 20170817
  3. NEXIUM [Suspect]
     Active Substance: ESOMEPRAZOLE MAGNESIUM
     Indication: Gastrooesophageal reflux disease
     Dosage: GENERIC
     Route: 065
     Dates: start: 2015, end: 2018
  4. NEXIUM 24HR [Suspect]
     Active Substance: ESOMEPRAZOLE MAGNESIUM
     Indication: Gastrooesophageal reflux disease
     Route: 048
     Dates: start: 2014, end: 2015
  5. PRILOSEC [Suspect]
     Active Substance: OMEPRAZOLE MAGNESIUM
     Indication: Gastrooesophageal reflux disease
     Route: 048
     Dates: start: 2014
  6. PRILOSEC [Suspect]
     Active Substance: OMEPRAZOLE MAGNESIUM
     Indication: Gastrooesophageal reflux disease
     Route: 048
     Dates: start: 2014
  7. PRILOSEC [Suspect]
     Active Substance: OMEPRAZOLE MAGNESIUM
     Indication: Gastrooesophageal reflux disease
     Route: 048
     Dates: start: 1991, end: 2017
  8. PRILOSEC [Suspect]
     Active Substance: OMEPRAZOLE MAGNESIUM
     Indication: Gastrooesophageal reflux disease
     Route: 048
     Dates: start: 1991, end: 2017
  9. PRILOSEC [Suspect]
     Active Substance: OMEPRAZOLE MAGNESIUM
     Indication: Gastrooesophageal reflux disease
     Dosage: GENERIC
     Route: 065
     Dates: start: 201203, end: 2018
  10. PRILOSEC [Suspect]
     Active Substance: OMEPRAZOLE MAGNESIUM
     Indication: Gastrooesophageal reflux disease
     Dosage: GENERIC
     Route: 065
     Dates: start: 201203, end: 2018
  11. PROTONIX [Suspect]
     Active Substance: PANTOPRAZOLE SODIUM
     Indication: Gastrooesophageal reflux disease
     Route: 065
     Dates: start: 20170626, end: 20180315
  12. PROTONIX [Suspect]
     Active Substance: PANTOPRAZOLE SODIUM
     Indication: Gastrooesophageal reflux disease
     Dosage: GENERIC
     Route: 065
     Dates: start: 20170812, end: 20180117
  13. ACIPHEX [Suspect]
     Active Substance: RABEPRAZOLE SODIUM
     Indication: Gastrooesophageal reflux disease
     Route: 065
     Dates: start: 20020618, end: 20080227
  14. BENAZEPRIL [Concomitant]
     Active Substance: BENAZEPRIL HYDROCHLORIDE
     Indication: Hypertension
     Dates: start: 20050622, end: 20180124
  15. KLONOPIN [Concomitant]
     Active Substance: CLONAZEPAM
     Indication: Sedative therapy
     Dates: start: 20071010, end: 20180121
  16. FLONASE [Concomitant]
     Active Substance: FLUTICASONE PROPIONATE
  17. GLUCOPHAGE [Concomitant]
     Active Substance: METFORMIN HYDROCHLORIDE
  18. TENORMIN [Concomitant]
     Active Substance: ATENOLOL
  19. LOTENSIN [Concomitant]
     Active Substance: BENAZEPRIL HYDROCHLORIDE
  20. AVANDIA [Concomitant]
     Active Substance: ROSIGLITAZONE MALEATE
  21. ZOCOR [Concomitant]
     Active Substance: SIMVASTATIN
  22. HYDRALAZINE [Concomitant]
     Active Substance: HYDRALAZINE HYDROCHLORIDE
  23. PREGABALIN [Concomitant]
     Active Substance: PREGABALIN
  24. PRIMIDONE [Concomitant]
     Active Substance: PRIMIDONE
  25. ONDANSETRON [Concomitant]
     Active Substance: ONDANSETRON
  26. CLINDAMYCIN HYDROCHLORIDE [Concomitant]
     Active Substance: CLINDAMYCIN HYDROCHLORIDE
  27. DOXYCYCLINE HYCLATE [Concomitant]
     Active Substance: DOXYCYCLINE HYCLATE
  28. CODEINE [Concomitant]
     Active Substance: CODEINE
  29. PROPRANOLOL [Concomitant]
     Active Substance: PROPRANOLOL HYDROCHLORIDE
  30. ASPIRIN [Concomitant]
     Active Substance: ASPIRIN
  31. CHLORTHALIDONE [Concomitant]
     Active Substance: CHLORTHALIDONE
  32. AMBIEN [Concomitant]
     Active Substance: ZOLPIDEM TARTRATE
  33. NYSTATIN [Concomitant]
     Active Substance: NYSTATIN
  34. CAMPHOR [Concomitant]
     Active Substance: CAMPHOR
  35. NIFEDIPINE [Concomitant]
     Active Substance: NIFEDIPINE
  36. ATORVASTATIN CALCIUM [Concomitant]
     Active Substance: ATORVASTATIN CALCIUM
  37. FENTANYL [Concomitant]
     Active Substance: FENTANYL
  38. HYALURONATE SODIUM/ADELMIDROL [Concomitant]
  39. MOMETASONE FUROATE [Concomitant]
     Active Substance: MOMETASONE FUROATE
  40. MOTRIN [Concomitant]
     Active Substance: IBUPROFEN
  41. VIOXX [Concomitant]
     Active Substance: ROFECOXIB
  42. IBUPROFEN [Concomitant]
     Active Substance: IBUPROFEN
     Indication: Pain
     Dates: start: 2017, end: 2020
  43. BENADRYL [Concomitant]
     Active Substance: DIPHENHYDRAMINE HYDROCHLORIDE
     Indication: Hypersensitivity
     Dates: start: 2017
  44. BENADRYL [Concomitant]
     Active Substance: DIPHENHYDRAMINE HYDROCHLORIDE
     Indication: Sinusitis
     Dates: start: 2017
  45. VITAMIN D2 [Concomitant]
     Active Substance: ERGOCALCIFEROL
     Indication: Immune system disorder
     Dates: start: 2000
  46. ACETAMINOPHEN [Concomitant]
     Active Substance: ACETAMINOPHEN
     Indication: Pain
     Dates: start: 2017, end: 2020
  47. ZANTAC [Concomitant]
     Active Substance: RANITIDINE HYDROCHLORIDE
     Indication: Pain
     Dates: start: 1980
  48. PEPTO-BISMOL [Concomitant]
     Active Substance: BISMUTH SUBSALICYLATE
     Dates: start: 2016, end: 2020
  49. ROSIGLITAZONE [Concomitant]
     Active Substance: ROSIGLITAZONE
     Dates: start: 2016, end: 2020
  50. MELOXICAM [Concomitant]
     Active Substance: MELOXICAM
     Dates: start: 2016, end: 2020
  51. FENOFIBRATE [Concomitant]
     Active Substance: FENOFIBRATE
     Dates: start: 2016, end: 2020
  52. FELODIPINE [Concomitant]
     Active Substance: FELODIPINE
     Dates: start: 2016, end: 2020
  53. OFLOXACIN [Concomitant]
     Active Substance: OFLOXACIN
     Dates: start: 2016, end: 2020
  54. LORATADINE [Concomitant]
     Active Substance: LORATADINE
     Dates: start: 2016, end: 2020
  55. VALDECOXIB/DICYCLOVERINE HYDROCHLORIDE [Concomitant]
     Dates: start: 2016, end: 2020
  56. TERBINAFINE [Concomitant]
     Active Substance: TERBINAFINE
     Dates: start: 2016, end: 2020
  57. DOCUSATE [Concomitant]
     Active Substance: DOCUSATE
     Dates: start: 2016, end: 2020
  58. FEXOFENADINE [Concomitant]
     Active Substance: FEXOFENADINE HYDROCHLORIDE
     Dates: start: 2016, end: 2020
  59. PRECOSE [Concomitant]
     Active Substance: ACARBOSE
     Dates: start: 2016, end: 2020
  60. TOPAMAX [Concomitant]
     Active Substance: TOPIRAMATE
     Dates: start: 2016, end: 2020
  61. MOBIC [Concomitant]
     Active Substance: MELOXICAM
     Dates: start: 2016, end: 2020
  62. WELLBUTRIN [Concomitant]
     Active Substance: BUPROPION HYDROCHLORIDE
     Dates: start: 2016, end: 2020
  63. TIZANIDINE [Concomitant]
     Active Substance: TIZANIDINE
     Dates: start: 2016, end: 2020
  64. PIOGLITAZONE [Concomitant]
     Active Substance: PIOGLITAZONE
     Dates: start: 2016, end: 2020
  65. POLYETHYLENE GLYCOL [Concomitant]
     Active Substance: POLYETHYLENE GLYCOL
     Dates: start: 2016, end: 2020
  66. DULCOLAX NOS [Concomitant]
     Active Substance: BISACODYL OR DOCUSATE SODIUM
     Dates: start: 2016, end: 2020
  67. MOMETASONE [Concomitant]
     Active Substance: MOMETASONE
     Dates: start: 2016, end: 2020
  68. RIZATRIPTAN [Concomitant]
     Active Substance: RIZATRIPTAN
     Dates: start: 2016, end: 2020
  69. AMBROXOL HYDROCHLORIDE/SULFAMETHOXAZOLE/TRIMETHOPRIM [Concomitant]
     Dates: start: 2016, end: 2020
  70. ERTUGLIFLOZIN PIDOLATE/SITAGLIPTIN PHOSPHATE MONOHYDRATE [Concomitant]
     Dates: start: 2016, end: 2020
  71. LOTREL [Concomitant]
     Active Substance: AMLODIPINE BESYLATE\BENAZEPRIL HYDROCHLORIDE
     Dates: start: 2016, end: 2020
  72. SENOKOT [Concomitant]
     Active Substance: SENNOSIDES
     Dates: start: 2016, end: 2020
  73. JANUMET [Concomitant]
     Active Substance: METFORMIN HYDROCHLORIDE\SITAGLIPTIN PHOSPHATE
     Dates: start: 2016, end: 2020

REACTIONS (2)
  - Chronic kidney disease [Not Recovered/Not Resolved]
  - Renal failure [Not Recovered/Not Resolved]

NARRATIVE: CASE EVENT DATE: 20090101
